FAERS Safety Report 24060795 (Version 2)
Quarter: 2024Q3

REPORT INFORMATION
  Report Type: Spontaneous
  Country: BR (occurrence: BR)
  Receive Date: 20240708
  Receipt Date: 20240715
  Transmission Date: 20241017
  Serious: Yes (Other)
  Sender: PFIZER
  Company Number: BR-PFIZER INC-202400206949

PATIENT
  Age: 53 Year
  Sex: Female
  Weight: 92.35 kg

DRUGS (2)
  1. RUXIENCE [Suspect]
     Active Substance: RITUXIMAB-PVVR
     Indication: Chronic lymphocytic leukaemia
     Dosage: 800MG, 1X DAY (1ST INFUSION PROTOCOL)
     Dates: start: 20240622, end: 20240622
  2. RUXIENCE [Suspect]
     Active Substance: RITUXIMAB-PVVR
     Dosage: UNK

REACTIONS (7)
  - Back pain [Unknown]
  - Pyrexia [Unknown]
  - Hypoxia [Recovering/Resolving]
  - Tachycardia [Recovering/Resolving]
  - Blood pressure systolic increased [Recovering/Resolving]
  - Creatinine renal clearance increased [Unknown]
  - Infusion related reaction [Unknown]

NARRATIVE: CASE EVENT DATE: 20240622
